FAERS Safety Report 5228710-7 (Version None)
Quarter: 2007Q1

REPORT INFORMATION
  Report Type: 
  Country: None (occurrence: None)
  Receive Date: 20070205
  Receipt Date: 20070124
  Transmission Date: 20070707
  Serious: Yes (Disabling)
  Sender: FDA-Public Use
  Company Number: PHRM2007FR00625

PATIENT
  Age: 78 Year
  Sex: Female
  Weight: 62 kg

DRUGS (1)
  1. ZOMETA [Suspect]
     Indication: MULTIPLE MYELOMA
     Dosage: 4 MG, QMO
     Route: 042
     Dates: start: 20060315, end: 20061215

REACTIONS (5)
  - ABSCESS JAW [None]
  - BONE DISORDER [None]
  - BONE FISTULA [None]
  - OSTEITIS [None]
  - OSTEONECROSIS [None]
